FAERS Safety Report 15803527 (Version 1)
Quarter: 2019Q1

REPORT INFORMATION
  Report Type: Spontaneous
  Country: US (occurrence: US)
  Receive Date: 20190108
  Receipt Date: 20190108
  Transmission Date: 20190417
  Serious: No
  Sender: FDA-Public Use
  Company Number: None

PATIENT

DRUGS (2)
  1. TOPIRAMATE XL [Suspect]
     Active Substance: TOPIRAMATE
  2. TOPIRAMATE. [Suspect]
     Active Substance: TOPIRAMATE

REACTIONS (4)
  - Loss of employment [None]
  - Feeling abnormal [None]
  - Incorrect product dosage form administered [None]
  - Product dispensing error [None]

NARRATIVE: CASE EVENT DATE: 2018
